FAERS Safety Report 13825065 (Version 1)
Quarter: 2017Q3

REPORT INFORMATION
  Report Type: Spontaneous
  Country: US (occurrence: US)
  Receive Date: 20170802
  Receipt Date: 20170802
  Transmission Date: 20171127
  Serious: Yes (Other)
  Sender: FDA-Public Use
  Company Number: US-PFIZER INC-2017333346

PATIENT
  Sex: Male

DRUGS (1)
  1. XELJANZ [Suspect]
     Active Substance: TOFACITINIB CITRATE
     Indication: RHEUMATOID ARTHRITIS
     Dosage: 5 MG, 2X/DAY
     Route: 048

REACTIONS (28)
  - Spinal disorder [Not Recovered/Not Resolved]
  - Road traffic accident [Unknown]
  - Dyspepsia [Unknown]
  - Back pain [Unknown]
  - Night sweats [Unknown]
  - Dupuytren^s contracture [Unknown]
  - Dysuria [Unknown]
  - Fatigue [Unknown]
  - Muscle spasms [Unknown]
  - Wheezing [Unknown]
  - Abdominal tenderness [Unknown]
  - Hernia [Unknown]
  - Sexual dysfunction [Unknown]
  - Arthralgia [Unknown]
  - Swelling [Unknown]
  - Musculoskeletal stiffness [Unknown]
  - Dizziness [Unknown]
  - Depression [Unknown]
  - Rash [Unknown]
  - Nocturia [Unknown]
  - Headache [Unknown]
  - Myalgia [Unknown]
  - Amnesia [Unknown]
  - Muscular weakness [Unknown]
  - Abdominal pain [Unknown]
  - Neck pain [Unknown]
  - Insomnia [Unknown]
  - Nodule [Unknown]
